FAERS Safety Report 20886307 (Version 2)
Quarter: 2022Q2

REPORT INFORMATION
  Report Type: Spontaneous
  Country: US (occurrence: US)
  Receive Date: 20220527
  Receipt Date: 20220610
  Transmission Date: 20220720
  Serious: No
  Sender: FDA-Public Use
  Company Number: US-NOVARTISTESTPH-NVSC2022US122115

PATIENT
  Sex: Male

DRUGS (1)
  1. MEKINIST [Suspect]
     Active Substance: TRAMETINIB DIMETHYL SULFOXIDE
     Indication: Brain neoplasm benign
     Dosage: 1 MG, QD
     Route: 048
     Dates: start: 20220504

REACTIONS (4)
  - Diarrhoea [Unknown]
  - Acne [Unknown]
  - Stomatitis [Unknown]
  - Product use in unapproved indication [Unknown]
